FAERS Safety Report 9511799 (Version 1)
Quarter: 2013Q3

REPORT INFORMATION
  Report Type: Spontaneous
  Country: US (occurrence: None)
  Receive Date: 20130909
  Receipt Date: 20130909
  Transmission Date: 20140515
  Serious: Yes (Other)
  Sender: FDA-Public Use
  Company Number: None

PATIENT
  Age: 69 Year
  Sex: Female
  Weight: 55.34 kg

DRUGS (1)
  1. AMITRIPTYLINE [Suspect]
     Indication: DIARRHOEA
     Dosage: 1 TABLET AT BEDTIME TAKEN BY MOUTH
     Route: 048
     Dates: start: 20130419, end: 20130428

REACTIONS (5)
  - Depression [None]
  - Feeling abnormal [None]
  - Unresponsive to stimuli [None]
  - Decreased interest [None]
  - Indifference [None]
